FAERS Safety Report 4383667-6 (Version None)
Quarter: 2004Q2

REPORT INFORMATION
  Report Type: 
  Country: None (occurrence: None)
  Receive Date: 20040623
  Receipt Date: 20040610
  Transmission Date: 20050107
  Serious: Yes (Hospitalization)
  Sender: FDA-Public Use
  Company Number: 368535

PATIENT
  Age: 75 Year
  Sex: Male

DRUGS (11)
  1. ARTIST [Suspect]
     Route: 048
     Dates: start: 20040329, end: 20040412
  2. ASPIRIN [Concomitant]
     Dates: start: 20030311
  3. ITOROL [Concomitant]
     Dates: start: 20030311
  4. LASIX [Concomitant]
     Dates: start: 20030311
  5. SIGMART [Concomitant]
     Dates: start: 20040324
  6. MAGNESIUM OXIDE [Concomitant]
     Dates: start: 20040315
  7. ESTAZOLAM [Concomitant]
     Dates: start: 20040324
  8. DORMICUM [Concomitant]
     Dates: start: 20040222, end: 20040309
  9. CARPERITIDE [Concomitant]
     Dates: start: 20040222, end: 20040329
  10. CEFOTIAM HYDROCHLORIDE [Concomitant]
     Dates: start: 20040223, end: 20040228
  11. PRIMAXIN [Concomitant]
     Dates: start: 20040228, end: 20040309

REACTIONS (4)
  - ALANINE AMINOTRANSFERASE INCREASED [None]
  - ASPARTATE AMINOTRANSFERASE INCREASED [None]
  - EOSINOPHIL COUNT INCREASED [None]
  - HEPATIC FUNCTION ABNORMAL [None]
